FAERS Safety Report 6264973-7 (Version None)
Quarter: 2009Q3

REPORT INFORMATION
  Report Type: 
  Country: None (occurrence: None)
  Receive Date: 20090709
  Receipt Date: 20090709
  Transmission Date: 20100115
  Serious: Yes (Life-Threatening, Hospitalization, Other)
  Sender: FDA-Public Use
  Company Number: None

PATIENT
  Sex: Female
  Weight: 54.8852 kg

DRUGS (1)
  1. YAZ [Suspect]
     Indication: ANAEMIA
     Dosage: 1 TABLET DAILY 3-4 MONTHS

REACTIONS (1)
  - PULMONARY EMBOLISM [None]
